FAERS Safety Report 24452241 (Version 2)
Quarter: 2024Q4

REPORT INFORMATION
  Report Type: Spontaneous
  Country: US (occurrence: US)
  Receive Date: 20241017
  Receipt Date: 20241028
  Transmission Date: 20250114
  Serious: No
  Sender: FRESENIUS KABI
  Company Number: US-FreseniusKabi-FK202415167

PATIENT
  Age: 61 Year
  Sex: Female
  Weight: 66.22 kg

DRUGS (2)
  1. PACLITAXEL [Suspect]
     Active Substance: PACLITAXEL
     Indication: Non-small cell lung cancer
     Dosage: FORM OF ADMINISTRATION: INJECTION?RATE 300CC/HR?THIS WAS FINAL DOSE
     Dates: start: 20240202
  2. PACLITAXEL [Suspect]
     Active Substance: PACLITAXEL
     Indication: Renal cancer

REACTIONS (2)
  - Dizziness [Unknown]
  - Dyspnoea [Unknown]

NARRATIVE: CASE EVENT DATE: 20240202
